FAERS Safety Report 10521830 (Version 1)
Quarter: 2014Q4

REPORT INFORMATION
  Report Type: Spontaneous
  Country: US (occurrence: None)
  Receive Date: 20141014
  Receipt Date: 20141014
  Transmission Date: 20150528
  Serious: Yes (Life-Threatening)
  Sender: FDA-Public Use
  Company Number: None

PATIENT
  Age: 56 Year
  Sex: Male
  Weight: 65.5 kg

DRUGS (2)
  1. METOCLOPRAMIDE 10 MG [Suspect]
     Active Substance: METOCLOPRAMIDE
     Indication: COUGH
     Route: 048
     Dates: start: 20141007, end: 20141007
  2. METOCLOPRAMIDE 10 MG [Suspect]
     Active Substance: METOCLOPRAMIDE
     Indication: GASTROOESOPHAGEAL REFLUX DISEASE
     Route: 048
     Dates: start: 20141007, end: 20141007

REACTIONS (1)
  - Neuroleptic malignant syndrome [None]

NARRATIVE: CASE EVENT DATE: 20141007
